FAERS Safety Report 13488909 (Version 1)
Quarter: 2017Q2

REPORT INFORMATION
  Report Type: Spontaneous
  Country: US (occurrence: US)
  Receive Date: 20170426
  Receipt Date: 20170426
  Transmission Date: 20170830
  Serious: No
  Sender: FDA-Public Use
  Company Number: US-ALKERMES INC.-ALK-2016-004055

PATIENT
  Age: 30 Year
  Sex: Male

DRUGS (1)
  1. VIVITROL [Suspect]
     Active Substance: NALTREXONE
     Indication: DRUG USE DISORDER
     Dosage: 380 MG, QMO
     Route: 042
     Dates: start: 20161223

REACTIONS (9)
  - Sensitivity of teeth [Recovered/Resolved]
  - Anxiety [Recovering/Resolving]
  - Drug use disorder [Unknown]
  - Emotional disorder [Unknown]
  - Mood swings [Recovered/Resolved]
  - Incorrect route of drug administration [Recovered/Resolved]
  - Drug withdrawal syndrome [Recovered/Resolved]
  - Toothache [Recovered/Resolved]
  - Headache [Recovered/Resolved]

NARRATIVE: CASE EVENT DATE: 201612
